FAERS Safety Report 4760551-7 (Version None)
Quarter: 2005Q3

REPORT INFORMATION
  Report Type: 
  Country: None (occurrence: None)
  Receive Date: 20050826
  Receipt Date: 20050222
  Transmission Date: 20060218
  Serious: Yes (Other)
  Sender: FDA-Public Use
  Company Number: USA-2005-0019046

PATIENT
  Age: 17 Year
  Sex: Female

DRUGS (2)
  1. OXYCONTIN [Suspect]
     Dosage: INHALATION
     Route: 055
  2. CRYSTAL METHAMPHETAMINE 9METAMFETAMINE) [Suspect]
     Dosage: INHALATION
     Route: 055

REACTIONS (1)
  - POLYSUBSTANCE ABUSE [None]
